FAERS Safety Report 20788419 (Version 1)
Quarter: 2022Q2

REPORT INFORMATION
  Report Type: Spontaneous
  Country: US (occurrence: None)
  Receive Date: 20220505
  Receipt Date: 20220505
  Transmission Date: 20220721
  Serious: No
  Sender: FDA-Public Use
  Company Number: 2022A165103

PATIENT
  Sex: Male
  Weight: 109.8 kg

DRUGS (1)
  1. EVUSHELD [Suspect]
     Active Substance: CILGAVIMAB\TIXAGEVIMAB
     Route: 030
     Dates: start: 20220426

REACTIONS (2)
  - Product administration error [Unknown]
  - Product preparation issue [Unknown]
